FAERS Safety Report 9611845 (Version 2)
Quarter: 2014Q1

REPORT INFORMATION
  Report Type: Report from Study
  Country: TZ (occurrence: TZ)
  Receive Date: 20131010
  Receipt Date: 20140120
  Transmission Date: 20141002
  Serious: Yes (Death, Other)
  Sender: FDA-Public Use
  Company Number: PHHY2013TZ113231

PATIENT
  Age: 56 Year
  Sex: Male

DRUGS (1)
  1. GLIVEC [Suspect]
     Indication: GASTROINTESTINAL STROMAL TUMOUR
     Dosage: 400 MG
     Dates: start: 20050601

REACTIONS (9)
  - Death [Fatal]
  - Gastrointestinal stromal tumour [Unknown]
  - Malignant neoplasm progression [Unknown]
  - Melaena [Unknown]
  - Abdominal mass [Unknown]
  - Metastases to liver [Unknown]
  - Hepatomegaly [Unknown]
  - General physical condition abnormal [Unknown]
  - Anaemia [Unknown]
